FAERS Safety Report 6559999-X (Version None)
Quarter: 2010Q1

REPORT INFORMATION
  Report Type: 
  Country: None (occurrence: None)
  Receive Date: 20100129
  Receipt Date: 20090914
  Transmission Date: 20100710
  Serious: No
  Sender: FDA-Public Use
  Company Number: US-ABBOTT-09P-163-0597705-00

PATIENT
  Sex: Female
  Weight: 80.358 kg

DRUGS (8)
  1. HUMIRA [Suspect]
     Indication: RHEUMATOID ARTHRITIS
     Route: 058
     Dates: start: 20080830, end: 20090720
  2. ESTRATEST [Concomitant]
     Indication: HORMONE REPLACEMENT THERAPY
     Dosage: 1.25/2.5
     Route: 048
  3. CELEBREX [Concomitant]
     Indication: RHEUMATOID ARTHRITIS
     Route: 048
  4. METHOTREXATE [Concomitant]
     Indication: RHEUMATOID ARTHRITIS
     Route: 048
  5. FOLIC ACID [Concomitant]
     Indication: VITAMIN SUPPLEMENTATION
     Route: 048
  6. LISINOPRIL [Concomitant]
     Indication: HYPERTENSION
     Route: 048
  7. CALTRATE PLUS D [Concomitant]
     Indication: MINERAL SUPPLEMENTATION
     Route: 048
  8. VITAMIN D3 [Concomitant]
     Indication: VITAMIN SUPPLEMENTATION
     Route: 048

REACTIONS (12)
  - ARTHRALGIA [None]
  - BRONCHITIS [None]
  - COUGH [None]
  - EAR PAIN [None]
  - FATIGUE [None]
  - FEELING ABNORMAL [None]
  - HEADACHE [None]
  - HYPOACUSIS [None]
  - JOINT CREPITATION [None]
  - PAIN [None]
  - PAIN IN JAW [None]
  - PARANASAL SINUS HYPERSECRETION [None]
